FAERS Safety Report 4687701-5 (Version None)
Quarter: 2005Q2

REPORT INFORMATION
  Report Type: 
  Country: None (occurrence: None)
  Receive Date: 20050610
  Receipt Date: 19921120
  Transmission Date: 20051028
  Serious: Yes (Death, Other)
  Sender: FDA-Public Use
  Company Number: 199203056HAG

PATIENT
  Age: 68 Year
  Sex: Male
  Weight: 73 kg

DRUGS (8)
  1. LASIX [Suspect]
     Dates: end: 19910320
  2. CORDARONE [Suspect]
     Dates: start: 19910210, end: 19910402
  3. VERAPAMIL HYDROCHLORIDE [Suspect]
     Indication: ESSENTIAL HYPERTENSION
  4. CAPOTEN [Suspect]
     Indication: ESSENTIAL HYPERTENSION
     Dates: end: 19910320
  5. LANOXIN [Suspect]
     Indication: ARRHYTHMIA
  6. SPAN-K [Suspect]
     Dates: end: 19910322
  7. ACTRAPID HM [Suspect]
     Indication: DIABETES MELLITUS
  8. HUMAN MONOTARD [Suspect]
     Indication: DIABETES MELLITUS

REACTIONS (7)
  - ALANINE AMINOTRANSFERASE INCREASED [None]
  - BLOOD ALKALINE PHOSPHATASE INCREASED [None]
  - GAMMA-GLUTAMYLTRANSFERASE INCREASED [None]
  - HEPATIC FUNCTION ABNORMAL [None]
  - MYALGIA [None]
  - MYOCARDIAL INFARCTION [None]
  - PYREXIA [None]
